FAERS Safety Report 21373930 (Version 1)
Quarter: 2022Q3

REPORT INFORMATION
  Report Type: Spontaneous
  Country: JP (occurrence: JP)
  Receive Date: 20220926
  Receipt Date: 20220926
  Transmission Date: 20221027
  Serious: Yes (Life-Threatening, Hospitalization, Other)
  Sender: FDA-Public Use
  Company Number: JP-NOVARTISPH-NVSJ2022JP098016

PATIENT
  Age: 77 Year
  Sex: Male

DRUGS (11)
  1. VILDAGLIPTIN [Suspect]
     Active Substance: VILDAGLIPTIN
     Indication: Type 2 diabetes mellitus
     Dosage: 100 MG
     Route: 048
  2. SACUBITRIL\VALSARTAN [Suspect]
     Active Substance: SACUBITRIL\VALSARTAN
     Indication: Cardiac failure
     Dosage: 100 MG
     Route: 048
  3. SACUBITRIL\VALSARTAN [Suspect]
     Active Substance: SACUBITRIL\VALSARTAN
     Dosage: 200 MG
     Route: 048
  4. SACUBITRIL\VALSARTAN [Suspect]
     Active Substance: SACUBITRIL\VALSARTAN
     Dosage: 400 MG
     Route: 065
  5. EPLERENONE [Concomitant]
     Active Substance: EPLERENONE
     Indication: Product used for unknown indication
     Dosage: 25 MG
     Route: 048
  6. EMPAGLIFLOZIN [Concomitant]
     Active Substance: EMPAGLIFLOZIN
     Indication: Product used for unknown indication
     Dosage: 10 MG
     Route: 048
  7. BISOPROLOL [Concomitant]
     Active Substance: BISOPROLOL
     Indication: Product used for unknown indication
     Dosage: 1.25 MG
     Route: 048
  8. BISOPROLOL [Concomitant]
     Active Substance: BISOPROLOL
     Dosage: 2.5 MG
     Route: 048
  9. AZOSEMIDE [Concomitant]
     Active Substance: AZOSEMIDE
     Indication: Product used for unknown indication
     Dosage: 30 MG
     Route: 065
  10. ESAXERENONE [Concomitant]
     Active Substance: ESAXERENONE
     Indication: Product used for unknown indication
     Dosage: 2.5 MG
     Route: 065
  11. ISOSORBIDE [Concomitant]
     Active Substance: ISOSORBIDE
     Indication: Product used for unknown indication
     Dosage: 40 MG
     Route: 065

REACTIONS (12)
  - Dyspnoea [Unknown]
  - Mitral valve incompetence [Unknown]
  - Ejection fraction decreased [Unknown]
  - Pulmonary congestion [Unknown]
  - Left ventricular dysfunction [Unknown]
  - Left ventricular hypertrophy [Unknown]
  - Cardiac murmur [Unknown]
  - Hypertension [Unknown]
  - Blood pressure systolic decreased [Unknown]
  - Electrocardiogram T wave inversion [Unknown]
  - Pleural effusion [Unknown]
  - Crepitations [Unknown]
